FAERS Safety Report 23294915 (Version 1)
Quarter: 2023Q4

REPORT INFORMATION
  Report Type: Report from Study
  Country: US (occurrence: US)
  Receive Date: 20231213
  Receipt Date: 20231213
  Transmission Date: 20240109
  Serious: Yes (Other)
  Sender: FDA-Public Use
  Company Number: US-ABBVIE-5535759

PATIENT
  Sex: Female

DRUGS (1)
  1. RINVOQ [Suspect]
     Active Substance: UPADACITINIB
     Indication: Product used for unknown indication
     Route: 048

REACTIONS (8)
  - Knee arthroplasty [Unknown]
  - Neuralgia [Unknown]
  - Arthralgia [Unknown]
  - Spinal fusion surgery [Unknown]
  - Spinal operation [Unknown]
  - Condition aggravated [Unknown]
  - Insomnia [Unknown]
  - Stress [Unknown]
